FAERS Safety Report 10162221 (Version 1)
Quarter: 2014Q2

REPORT INFORMATION
  Report Type: Spontaneous
  Country: BR (occurrence: BR)
  Receive Date: 20140509
  Receipt Date: 20140509
  Transmission Date: 20141212
  Serious: Yes (Hospitalization, Other)
  Sender: FDA-Public Use
  Company Number: BR-SA-2014SA057008

PATIENT
  Age: 84 Year
  Sex: Male

DRUGS (5)
  1. LANTUS [Suspect]
     Indication: DIABETES MELLITUS
     Dosage: STRENGTH + FORM: 3 ML CARTRIDGE
     Route: 058
     Dates: start: 2010
  2. DEVICE NOS [Concomitant]
     Indication: DEVICE THERAPY
  3. CEBRALAT [Concomitant]
     Route: 048
     Dates: start: 2004
  4. PLAVIX [Concomitant]
     Indication: CARDIAC DISORDER
     Route: 048
     Dates: start: 2004
  5. GALVUS [Concomitant]
     Indication: DIABETES MELLITUS
     Route: 048
     Dates: start: 2011

REACTIONS (5)
  - Parkinson^s disease [Not Recovered/Not Resolved]
  - Tremor [Not Recovered/Not Resolved]
  - Gait disturbance [Not Recovered/Not Resolved]
  - Lung infection [Recovered/Resolved]
  - Pyrexia [Recovered/Resolved]
